FAERS Safety Report 6994615-4 (Version None)
Quarter: 2010Q3

REPORT INFORMATION
  Report Type: 
  Country: None (occurrence: None)
  Receive Date: 20100916
  Receipt Date: 20100916
  Transmission Date: 20110219
  Serious: Yes (Hospitalization)
  Sender: FDA-Public Use
  Company Number: None

PATIENT
  Age: 38 Year
  Sex: Female
  Weight: 59.3 kg

DRUGS (7)
  1. SUTENT [Suspect]
     Indication: METASTASES TO CENTRAL NERVOUS SYSTEM
     Dosage: 37.5MG PO
     Route: 048
     Dates: start: 20100716, end: 20100821
  2. XELODA [Concomitant]
  3. PHENYTOIN SODIUM CAP [Concomitant]
  4. METOPROLOL TARTRATE [Concomitant]
  5. COLACE [Concomitant]
  6. KADIAN [Concomitant]
  7. MORPHINE [Concomitant]

REACTIONS (5)
  - BREAST CANCER METASTATIC [None]
  - DELIRIUM [None]
  - HYPERCALCAEMIA [None]
  - MALIGNANT NEOPLASM PROGRESSION [None]
  - PYREXIA [None]
